FAERS Safety Report 12349138 (Version 3)
Quarter: 2016Q2

REPORT INFORMATION
  Report Type: Report from Study
  Country: US (occurrence: US)
  Receive Date: 20160509
  Receipt Date: 20160613
  Transmission Date: 20160815
  Serious: Yes (Other)
  Sender: FDA-Public Use
  Company Number: US-GILEAD-2016-0212520

PATIENT
  Age: 62 Year
  Sex: Female

DRUGS (1)
  1. LEDIPASVIR/SOFOSBUVIR [Suspect]
     Active Substance: LEDIPASVIR\SOFOSBUVIR
     Indication: CHRONIC HEPATITIS C
     Dosage: 1 DF, UNK
     Route: 048
     Dates: start: 20160506

REACTIONS (8)
  - Unevaluable event [Unknown]
  - Product quality issue [Unknown]
  - Hyperhidrosis [Unknown]
  - Insomnia [Unknown]
  - Sympathomimetic effect [Unknown]
  - Choking [Unknown]
  - Stress [Unknown]
  - Emotional disorder [Unknown]

NARRATIVE: CASE EVENT DATE: 20160503
